FAERS Safety Report 8784870 (Version 1)
Quarter: 2012Q4

REPORT INFORMATION
  Report Type: Spontaneous
  Country: GB (occurrence: None)
  Receive Date: 20120831
  Receipt Date: 20120831
  Transmission Date: 20130627
  Serious: Yes (Other)
  Sender: FDA-Public Use
  Company Number: 2012-003124

PATIENT
  Age: 75 Year
  Sex: Male

DRUGS (1)
  1. ASACOL [Suspect]
     Indication: ULCERATIVE COLITIS
     Route: 048

REACTIONS (1)
  - Lung neoplasm malignant [None]
